FAERS Safety Report 6973955-9 (Version None)
Quarter: 2010Q3

REPORT INFORMATION
  Report Type: 
  Country: None (occurrence: None)
  Receive Date: 20100909
  Receipt Date: 20100830
  Transmission Date: 20110219
  Serious: Yes (Hospitalization)
  Sender: FDA-Public Use
  Company Number: GXKR2010JP08714

PATIENT
  Sex: Female
  Weight: 51.2 kg

DRUGS (4)
  1. RIFAMPICIN SANDOZ (NGX) [Suspect]
     Indication: ATYPICAL MYCOBACTERIAL INFECTION
     Dosage: 750 MG DAILY
     Route: 048
     Dates: start: 20100306
  2. EBUTOL [Concomitant]
     Dosage: UNK
     Dates: start: 20100803
  3. CLARITHROMYCIN [Concomitant]
     Indication: ATYPICAL MYCOBACTERIAL INFECTION
     Dosage: UNK
     Dates: start: 20100803
  4. LEVOFLOXACIN [Concomitant]

REACTIONS (1)
  - NEPHROTIC SYNDROME [None]
